FAERS Safety Report 25739518 (Version 2)
Quarter: 2025Q3

REPORT INFORMATION
  Report Type: Spontaneous
  Country: US (occurrence: US)
  Receive Date: 20250829
  Receipt Date: 20250906
  Transmission Date: 20251020
  Serious: Yes (Life-Threatening, Hospitalization, Other)
  Sender: ACCORD
  Company Number: US-Accord-501626

PATIENT
  Age: 50 Year
  Sex: Male

DRUGS (1)
  1. FLUOROURACIL [Suspect]
     Active Substance: FLUOROURACIL
     Indication: Colon cancer

REACTIONS (3)
  - Arrhythmic storm [Recovered/Resolved]
  - Brugada syndrome [Recovered/Resolved]
  - Ventricular fibrillation [Recovered/Resolved]
